FAERS Safety Report 9529373 (Version 2)
Quarter: 2014Q1

REPORT INFORMATION
  Report Type: Report from Study
  Country: JP (occurrence: JP)
  Receive Date: 20130917
  Receipt Date: 20140305
  Transmission Date: 20141002
  Serious: Yes (Other)
  Sender: FDA-Public Use
  Company Number: JP-VERTEX PHARMACEUTICALS INC-2013-009612

PATIENT
  Age: 66 Year
  Sex: Male

DRUGS (10)
  1. VX-950 (TELAPREVIR) [Suspect]
     Indication: CHRONIC HEPATITIS C
     Dosage: 1500 MG, QD
     Route: 048
     Dates: start: 20120412, end: 20120425
  2. VX-950 (TELAPREVIR) [Suspect]
     Dosage: 1250 MG, QD
     Route: 048
     Dates: start: 20120426, end: 20120501
  3. VX-950 (TELAPREVIR) [Suspect]
     Dosage: 1000 MG, QD
     Route: 048
     Dates: start: 20120502
  4. PEGINTERFERON ALFA-2B [Suspect]
     Indication: CHRONIC HEPATITIS C
     Dosage: 1.45 ?G/KG, QW
     Route: 058
     Dates: start: 20120412, end: 20120425
  5. PEGINTERFERON ALFA-2B [Suspect]
     Dosage: 1.15 ?G/KG, QW
     Route: 058
     Dates: start: 20120426
  6. REBETOL [Concomitant]
     Dosage: 800 MG, QD
     Route: 048
     Dates: start: 20120412, end: 20120425
  7. REBETOL [Concomitant]
     Dosage: 600 MG, QD
     Route: 048
     Dates: start: 20120426
  8. PROMAC [Concomitant]
     Dosage: 150 MG, QD
     Route: 048
     Dates: start: 20120412
  9. ADALAT CR [Concomitant]
     Dosage: 20 MG, QD
     Route: 048
     Dates: start: 20120418
  10. ZYLORIC [Concomitant]
     Dosage: 50 MG, QD
     Route: 048
     Dates: start: 20120419

REACTIONS (1)
  - Neutrophil count decreased [Recovered/Resolved]
